FAERS Safety Report 6141742-X (Version None)
Quarter: 2009Q2

REPORT INFORMATION
  Report Type: 
  Country: None (occurrence: None)
  Receive Date: 20090402
  Receipt Date: 20081112
  Transmission Date: 20091009
  Serious: No
  Sender: FDA-Public Use
  Company Number: US-ABBOTT-08P-163-0462412-00

PATIENT
  Sex: Female
  Weight: 65.83 kg

DRUGS (1)
  1. LUPRON DEPOT [Suspect]
     Indication: UTERINE LEIOMYOMA
     Route: 030
     Dates: start: 20080702

REACTIONS (5)
  - ABDOMINAL PAIN [None]
  - HYPOMENORRHOEA [None]
  - MENSTRUAL DISORDER [None]
  - METRORRHAGIA [None]
  - VAGINAL DISCHARGE [None]
